FAERS Safety Report 22923625 (Version 2)
Quarter: 2025Q1

REPORT INFORMATION
  Report Type: Report from Study
  Country: US (occurrence: US)
  Receive Date: 20230908
  Receipt Date: 20250124
  Transmission Date: 20250408
  Serious: Yes (Hospitalization, Other)
  Sender: TAKEDA
  Company Number: US-BAXTER-2015BAX024556

PATIENT
  Age: 50 Year
  Sex: Female
  Weight: 82 kg

DRUGS (22)
  1. HUMAN IMMUNOGLOBULIN G [Suspect]
     Active Substance: HUMAN IMMUNOGLOBULIN G
     Indication: Immunodeficiency common variable
     Dosage: 50 GRAM, Q4WEEKS
     Dates: start: 2009
  2. HUMAN IMMUNOGLOBULIN G [Suspect]
     Active Substance: HUMAN IMMUNOGLOBULIN G
     Dosage: 55 GRAM, Q4WEEKS
  3. HUMAN IMMUNOGLOBULIN G [Suspect]
     Active Substance: HUMAN IMMUNOGLOBULIN G
     Dosage: 55 GRAM, Q4WEEKS
     Dates: start: 201203
  4. HUMAN IMMUNOGLOBULIN G [Suspect]
     Active Substance: HUMAN IMMUNOGLOBULIN G
     Dosage: 55 GRAM, Q4WEEKS
  5. HYDROXYZINE [Concomitant]
     Active Substance: HYDROXYZINE HYDROCHLORIDE
  6. ZYRTEC [Concomitant]
     Active Substance: CETIRIZINE HYDROCHLORIDE
  7. ALLEGRA [Concomitant]
     Active Substance: FEXOFENADINE HYDROCHLORIDE
  8. DULERA [Concomitant]
     Active Substance: FORMOTEROL FUMARATE DIHYDRATE\MOMETASONE FUROATE
     Indication: Asthma
  9. MONTELUKAST [Concomitant]
     Active Substance: MONTELUKAST
  10. ALTACE [Concomitant]
     Active Substance: RAMIPRIL
  11. LIPITOR [Concomitant]
     Active Substance: ATORVASTATIN CALCIUM
  12. WELLBUTRIN [Concomitant]
     Active Substance: BUPROPION HYDROCHLORIDE
  13. PREMARIN [Concomitant]
     Active Substance: ESTROGENS, CONJUGATED
     Indication: Blood oestrogen
  14. METHYLPREDNISOLONE [Concomitant]
     Active Substance: METHYLPREDNISOLONE
     Indication: Respiratory tract infection
  15. OMNICEF [Concomitant]
     Active Substance: CEFDINIR
     Indication: Respiratory tract infection
  16. FISH OIL [Concomitant]
     Active Substance: FISH OIL
  17. LEVOXYL [Concomitant]
     Active Substance: LEVOTHYROXINE SODIUM
  18. VITAMIN D [Concomitant]
     Active Substance: VITAMIN D NOS
  19. ASPIRIN [Concomitant]
     Active Substance: ASPIRIN
  20. VITAMIN C [Concomitant]
     Active Substance: ASCORBIC ACID
  21. POTASSIUM [Concomitant]
     Active Substance: POTASSIUM
  22. MAGNESIUM [Concomitant]
     Active Substance: MAGNESIUM

REACTIONS (5)
  - Septic shock [Recovered/Resolved]
  - Colonic abscess [Recovered/Resolved]
  - Respiratory tract infection [Unknown]
  - Muscle spasms [Unknown]
  - Immunoglobulins abnormal [Recovered/Resolved]

NARRATIVE: CASE EVENT DATE: 20120301
